FAERS Safety Report 14393555 (Version 2)
Quarter: 2018Q1

REPORT INFORMATION
  Report Type: Report from Study
  Country: CA (occurrence: CA)
  Receive Date: 20180116
  Receipt Date: 20180223
  Transmission Date: 20180509
  Serious: Yes (Hospitalization, Other)
  Sender: FDA-Public Use
  Company Number: CA-TAKEDA-2018TUS001027

PATIENT
  Age: 37 Year
  Sex: Female

DRUGS (6)
  1. PANTOLOC [Suspect]
     Active Substance: PANTOPRAZOLE SODIUM
     Indication: GASTRIC ULCER
     Dosage: 40 MG, BID
     Route: 065
  2. TRAMADOL. [Concomitant]
     Active Substance: TRAMADOL
     Dosage: UNK
  3. VEDOLIZUMAB [Suspect]
     Active Substance: VEDOLIZUMAB
     Indication: CROHN^S DISEASE
     Dosage: 300 MG, UNK
     Route: 042
     Dates: start: 20170203
  4. CITALOPRAM [Concomitant]
     Active Substance: CITALOPRAM HYDROBROMIDE
     Dosage: 30 MG, QD
  5. VEDOLIZUMAB [Suspect]
     Active Substance: VEDOLIZUMAB
     Dosage: 300 MG, Q4WEEKS
     Route: 042
     Dates: start: 20170620
  6. MORPHINE [Concomitant]
     Active Substance: MORPHINE
     Dosage: UNK

REACTIONS (5)
  - Gastrointestinal stoma output increased [Not Recovered/Not Resolved]
  - Abdominal pain upper [Not Recovered/Not Resolved]
  - Intestinal obstruction [Not Recovered/Not Resolved]
  - Ileostomy [Not Recovered/Not Resolved]
  - Off label use [Unknown]

NARRATIVE: CASE EVENT DATE: 20170620
